APPROVED DRUG PRODUCT: AMINOPHYLLINE
Active Ingredient: AMINOPHYLLINE
Strength: 100MG
Dosage Form/Route: TABLET, DELAYED RELEASE;ORAL
Application: A084632 | Product #002
Applicant: TABLICAPS INC
Approved: Approved Prior to Jan 1, 1982 | RLD: No | RS: No | Type: DISCN